FAERS Safety Report 6495890-5 (Version None)
Quarter: 2009Q4

REPORT INFORMATION
  Report Type: 
  Country: None (occurrence: None)
  Receive Date: 20091214
  Receipt Date: 20090825
  Transmission Date: 20100525
  Serious: No
  Sender: FDA-Public Use
  Company Number: US-BRISTOL-MYERS SQUIBB COMPANY-14754071

PATIENT
  Age: 63 Year
  Sex: Male
  Weight: 81 kg

DRUGS (4)
  1. ABILIFY [Suspect]
     Dosage: INITIALLY 5MG THEN DOSE WAS INCREASED TO 10MG THEN AGAIN DECREASED TO 5MG
  2. ANTIDEPRESSANT [Suspect]
  3. CYMBALTA [Concomitant]
  4. RITALIN [Concomitant]

REACTIONS (5)
  - ASTHENIA [None]
  - BALANCE DISORDER [None]
  - DEPRESSION [None]
  - DYSKINESIA [None]
  - SOMNOLENCE [None]
